FAERS Safety Report 6522058-6 (Version None)
Quarter: 2009Q4

REPORT INFORMATION
  Report Type: 
  Country: None (occurrence: None)
  Receive Date: 20091230
  Receipt Date: 20091228
  Transmission Date: 20100525
  Serious: Yes (Death)
  Sender: FDA-Public Use
  Company Number: US-KINGPHARMUSA00001-K200901611

PATIENT
  Age: 66 Year
  Sex: Female

DRUGS (6)
  1. SEPTRA [Suspect]
     Indication: COMPLETED SUICIDE
     Dosage: UNK
     Route: 048
  2. METFORMIN [Suspect]
     Indication: COMPLETED SUICIDE
     Dosage: UNK
     Route: 048
  3. QUETIAPINE [Suspect]
     Indication: COMPLETED SUICIDE
     Dosage: UNK
     Route: 048
  4. VENLAFAXINE HYDROCHLORIDE [Suspect]
     Indication: COMPLETED SUICIDE
     Dosage: UNK
     Route: 048
  5. CLONAZEPAM [Suspect]
     Indication: COMPLETED SUICIDE
     Dosage: UNK
     Route: 048
  6. PIOGLITAZONE [Suspect]
     Indication: COMPLETED SUICIDE
     Dosage: UNK
     Route: 048

REACTIONS (1)
  - COMPLETED SUICIDE [None]
